FAERS Safety Report 4807264-0 (Version None)
Quarter: 2005Q4

REPORT INFORMATION
  Report Type: 
  Country: None (occurrence: None)
  Receive Date: 20051024
  Receipt Date: 20050609
  Transmission Date: 20060501
  Serious: Yes (Other)
  Sender: FDA-Public Use
  Company Number: PHNR2005AU00959

PATIENT
  Age: 60 Year
  Sex: Female

DRUGS (8)
  1. ZOMETA [Suspect]
     Indication: METASTASES TO BONE
     Dosage: 4 MG
  2. AREDIA [Suspect]
     Dosage: 90 MG
     Dates: start: 20020419
  3. XELODA [Concomitant]
     Indication: BREAST CANCER METASTATIC
  4. MITOMYCIN [Concomitant]
     Indication: BREAST CANCER METASTATIC
  5. MITOXANTRONE [Concomitant]
     Indication: BREAST CANCER METASTATIC
  6. METHOTREXATE [Concomitant]
     Indication: BREAST CANCER METASTATIC
  7. DEXAMETHASONE [Concomitant]
  8. HORMONES [Concomitant]

REACTIONS (8)
  - BONE DISORDER [None]
  - IMPAIRED HEALING [None]
  - OSTEONECROSIS [None]
  - PAIN IN JAW [None]
  - SOFT TISSUE INFECTION [None]
  - SOFT TISSUE INFLAMMATION [None]
  - TOOTH DISORDER [None]
  - TOOTH EXTRACTION [None]
